FAERS Safety Report 23609004 (Version 1)
Quarter: 2024Q1

REPORT INFORMATION
  Report Type: Spontaneous
  Country: US (occurrence: US)
  Receive Date: 20240308
  Receipt Date: 20240308
  Transmission Date: 20240410
  Serious: No
  Sender: FDA-Public Use
  Company Number: US-SA-2024SA073391

PATIENT
  Age: 23 Year
  Sex: Female
  Weight: 64.4 kg

DRUGS (1)
  1. DUPIXENT [Suspect]
     Active Substance: DUPILUMAB
     Indication: Neurodermatitis
     Dosage: 300 MG, QOW
     Route: 058
     Dates: start: 201812

REACTIONS (3)
  - Blister [Unknown]
  - Pruritus [Not Recovered/Not Resolved]
  - Erythema [Unknown]
